FAERS Safety Report 6374132-5 (Version None)
Quarter: 2009Q3

REPORT INFORMATION
  Report Type: 
  Country: None (occurrence: None)
  Receive Date: 20090924
  Receipt Date: 20090611
  Transmission Date: 20100115
  Serious: Yes (Hospitalization, Other)
  Sender: FDA-Public Use
  Company Number: US-ASTRAZENECA-2009UW15656

PATIENT
  Age: 534 Month
  Sex: Male
  Weight: 83.9 kg

DRUGS (2)
  1. SEROQUEL [Suspect]
     Indication: HALLUCINATION
     Route: 048
     Dates: start: 20050801, end: 20060101
  2. NEXIUM [Concomitant]

REACTIONS (1)
  - PANCREATITIS [None]
